FAERS Safety Report 4378643-3 (Version None)
Quarter: 2004Q2

REPORT INFORMATION
  Report Type: 
  Country: None (occurrence: None)
  Receive Date: 20040609
  Receipt Date: 20040604
  Transmission Date: 20050107
  Serious: Yes (Death)
  Sender: FDA-Public Use
  Company Number: GBWYE712120APR04

PATIENT
  Sex: Male

DRUGS (3)
  1. EFFEXOR XR [Suspect]
     Indication: DEPRESSION
     Dosage: 37.5 MG 2X PER 1 DAY ORAL
     Route: 048
     Dates: start: 20030924, end: 20040201
  2. ZOPICLONE (ZOPICLONE) [Concomitant]
  3. METHADONE (METHADONE) [Concomitant]

REACTIONS (4)
  - DRUG EXPOSURE DURING PREGNANCY [None]
  - POTTER'S SYNDROME [None]
  - PREMATURE BABY [None]
  - STILLBIRTH [None]
